FAERS Safety Report 9904411 (Version 3)
Quarter: 2014Q1

REPORT INFORMATION
  Report Type: Spontaneous
  Country: US (occurrence: US)
  Receive Date: 20140218
  Receipt Date: 20140321
  Transmission Date: 20141002
  Serious: Yes (Disabling, Other)
  Sender: FDA-Public Use
  Company Number: US-MERCK-1402USA007626

PATIENT
  Age: 58 Year
  Sex: Female
  Weight: 87.75 kg

DRUGS (5)
  1. JANUMET XR [Suspect]
     Indication: TYPE 2 DIABETES MELLITUS
     Dosage: TWO DAILY
     Route: 048
     Dates: start: 20131219, end: 20140131
  2. LISINOPRIL [Concomitant]
     Dosage: TOTAL DAILY DOSE 5 MG
     Route: 048
  3. NEXIUM [Concomitant]
     Dosage: TOTAL DAILY DOSE 40 MG
     Route: 048
  4. METFORMIN [Concomitant]
     Route: 048
  5. PRAVASTATIN SODIUM [Concomitant]
     Dosage: TOTAL DAILY DOSE 40 MG

REACTIONS (1)
  - Pancreatitis acute [Recovered/Resolved]
